FAERS Safety Report 5849472-6 (Version None)
Quarter: 2008Q3

REPORT INFORMATION
  Report Type: 
  Country: None (occurrence: None)
  Receive Date: 20080819
  Receipt Date: 20080811
  Transmission Date: 20090109
  Serious: Yes (Hospitalization)
  Sender: FDA-Public Use
  Company Number: US-BAYER-200714156BCC

PATIENT
  Age: 68 Year
  Sex: Male
  Weight: 122 kg

DRUGS (9)
  1. ALEVE [Suspect]
     Indication: BACK PAIN
     Route: 048
     Dates: start: 20071201, end: 20071201
  2. ASPIRIN [Suspect]
     Indication: DRUG USE FOR UNKNOWN INDICATION
  3. TOPROL-XL [Concomitant]
  4. ACTOS [Concomitant]
  5. ZOCOR [Concomitant]
  6. METFORMIN HCL [Concomitant]
  7. LEXAPRO [Concomitant]
  8. COUMADIN [Concomitant]
  9. EQUATE NAPROXEN SODIUM [Concomitant]

REACTIONS (9)
  - DROOLING [None]
  - FAECAL INCONTINENCE [None]
  - FALL [None]
  - FATIGUE [None]
  - GENERALISED ERYTHEMA [None]
  - HYPERSENSITIVITY [None]
  - NAUSEA [None]
  - PARAESTHESIA [None]
  - URINARY INCONTINENCE [None]
